FAERS Safety Report 5680511-1 (Version None)
Quarter: 2008Q1

REPORT INFORMATION
  Report Type: 
  Country: None (occurrence: None)
  Receive Date: 20080326
  Receipt Date: 20080320
  Transmission Date: 20080703
  Serious: Yes (Other)
  Sender: FDA-Public Use
  Company Number: US-ASTRAZENECA-2006UW21953

PATIENT
  Age: 323 Month
  Sex: Female
  Weight: 104.5 kg

DRUGS (9)
  1. SEROQUEL [Suspect]
     Indication: DEPRESSION
     Route: 048
     Dates: start: 20040701
  2. SEROQUEL [Suspect]
     Indication: ANXIETY
     Route: 048
     Dates: start: 20040701
  3. GEODON [Concomitant]
  4. ZYPREXA [Concomitant]
  5. DEPAKOTE [Concomitant]
  6. GEXAPRO [Concomitant]
  7. KLONOPIN [Concomitant]
  8. NEVROTIN [Concomitant]
  9. XANAX [Concomitant]

REACTIONS (6)
  - BLOOD CHOLESTEROL INCREASED [None]
  - DIABETES MELLITUS [None]
  - DIABETIC KETOACIDOSIS [None]
  - MENTAL DISORDER [None]
  - NEUROPATHY PERIPHERAL [None]
  - OBESITY [None]
